FAERS Safety Report 20619862 (Version 1)
Quarter: 2022Q1

REPORT INFORMATION
  Report Type: Spontaneous
  Country: US (occurrence: US)
  Receive Date: 20220322
  Receipt Date: 20220322
  Transmission Date: 20220423
  Serious: Yes (Other)
  Sender: FDA-Public Use
  Company Number: US-BAYER-2022A037151

PATIENT
  Age: 18 Year

DRUGS (1)
  1. MIRALAX [Suspect]
     Active Substance: POLYETHYLENE GLYCOL 3350
     Indication: Constipation
     Dosage: UNK, EVERY NIGHT BEFORE GOING TO SLEEP

REACTIONS (3)
  - Drug dependence [Unknown]
  - Product use in unapproved indication [None]
  - Incorrect product administration duration [None]
